FAERS Safety Report 12272476 (Version 2)
Quarter: 2016Q2

REPORT INFORMATION
  Report Type: Spontaneous
  Country: US (occurrence: US)
  Receive Date: 20160415
  Receipt Date: 20160422
  Transmission Date: 20160815
  Serious: No
  Sender: FDA-Public Use
  Company Number: ADR-2013-01332

PATIENT
  Age: 60 Year
  Sex: Male

DRUGS (9)
  1. SUFENTANIL [Suspect]
     Active Substance: SUFENTANIL
     Dosage: 3.8660 MCG/DAY
     Route: 037
  2. MARCAINE [Suspect]
     Active Substance: BUPIVACAINE HYDROCHLORIDE
     Dosage: 6.7268 MG/DAY
     Route: 037
  3. MARCAINE [Suspect]
     Active Substance: BUPIVACAINE HYDROCHLORIDE
     Dosage: 6.1141 MG/DAY
     Route: 037
  4. COMPOUNDED BACLOFEN INTRATHECAL [Suspect]
     Active Substance: BACLOFEN
     Dosage: 163.5MCG/DAY
     Route: 037
  5. MARCAINE [Suspect]
     Active Substance: BUPIVACAINE HYDROCHLORIDE
     Dosage: 7.4086MG/DAY
     Route: 037
  6. COMPOUNDED BACLOFEN INTRATHECAL [Suspect]
     Active Substance: BACLOFEN
     Dosage: 148.45 MCG/DAY
     Route: 037
  7. SUFENTANIL [Suspect]
     Active Substance: SUFENTANIL
     Dosage: 4.2578MCG/DAY
     Route: 037
  8. SUFENTANIL [Suspect]
     Active Substance: SUFENTANIL
     Dosage: 3.5139 MCG/DAY
     Route: 037
  9. COMPOUNDED BACLOFEN INTRATHECAL [Suspect]
     Active Substance: BACLOFEN
     Dosage: 134.93 MCG/DAY
     Route: 037

REACTIONS (7)
  - Spinal osteoarthritis [Unknown]
  - Pain in extremity [Recovered/Resolved]
  - No therapeutic response [Unknown]
  - Spinal column stenosis [Unknown]
  - Pain [Recovered/Resolved]
  - Back pain [Recovered/Resolved]
  - Back disorder [Unknown]

NARRATIVE: CASE EVENT DATE: 20130724
